FAERS Safety Report 7564918-3 (Version None)
Quarter: 2011Q2

REPORT INFORMATION
  Report Type: 
  Country: None (occurrence: None)
  Receive Date: 20110622
  Receipt Date: 20110317
  Transmission Date: 20111010
  Serious: Yes (Other)
  Sender: FDA-Public Use
  Company Number: US-MYLANLABS-2011S1003397

PATIENT
  Age: 41 Year
  Sex: Male
  Weight: 68.04 kg

DRUGS (8)
  1. CLONAZEPAM [Concomitant]
  2. CLONAZEPAM [Concomitant]
  3. ABILIFY [Concomitant]
  4. HYDROCODONE BITARTRATE AND ACETAMINOPHEN [Concomitant]
     Dosage: 5/500MG
     Dates: start: 20110207
  5. CLOZAPINE [Suspect]
     Indication: SCHIZOAFFECTIVE DISORDER
     Route: 048
     Dates: start: 20100401, end: 20110214
  6. CLOZAPINE [Suspect]
     Route: 048
     Dates: start: 20110216
  7. CLONAZEPAM [Concomitant]
  8. TOPIRAMATE [Concomitant]

REACTIONS (2)
  - LEUKOPENIA [None]
  - GRANULOCYTOPENIA [None]
